FAERS Safety Report 4654869-6 (Version None)
Quarter: 2005Q2

REPORT INFORMATION
  Report Type: 
  Country: None (occurrence: None)
  Receive Date: 20050506
  Receipt Date: 20050427
  Transmission Date: 20051028
  Serious: Yes (Death)
  Sender: FDA-Public Use
  Company Number: JP-MERCK-0505USA00186

PATIENT
  Age: 85 Year
  Sex: Female

DRUGS (7)
  1. ZOCOR [Suspect]
     Indication: HYPERLIPIDAEMIA
     Route: 048
     Dates: start: 20041213
  2. GASTER [Concomitant]
     Indication: GASTRIC ULCER
     Route: 048
     Dates: start: 20040510
  3. ONON [Concomitant]
     Indication: ASTHMA
     Route: 048
     Dates: start: 20031215
  4. HOKUNALIN [Concomitant]
     Indication: ASTHMA
     Route: 061
     Dates: start: 20040107
  5. FLUTIDE [Concomitant]
     Indication: ASTHMA
     Route: 055
     Dates: start: 20031215
  6. SEREVENT [Concomitant]
     Indication: ASTHMA
     Route: 055
     Dates: start: 20040107
  7. OXYGEN [Concomitant]
     Indication: CHRONIC OBSTRUCTIVE PULMONARY DISEASE
     Route: 055
     Dates: start: 20041213

REACTIONS (1)
  - PNEUMONIA ASPIRATION [None]
